FAERS Safety Report 26129927 (Version 1)
Quarter: 2025Q4

REPORT INFORMATION
  Report Type: Spontaneous
  Country: US (occurrence: US)
  Receive Date: 20251208
  Receipt Date: 20251208
  Transmission Date: 20260117
  Serious: No
  Sender: IPSEN BIOPHARMACEUTICALS, INC.
  Company Number: US-IPSEN Group, Research and Development-2025-29566

PATIENT
  Age: 51 Year
  Sex: Female

DRUGS (11)
  1. IQIRVO [Suspect]
     Active Substance: ELAFIBRANOR
     Indication: Primary biliary cholangitis
     Dosage: TAKE ONE TABLET BY MOUTH ONCE DAILY.
     Route: 048
     Dates: start: 20251122
  2. ATENOLOL [Concomitant]
     Active Substance: ATENOLOL
  3. FENOFIBRATE [Concomitant]
     Active Substance: FENOFIBRATE
  4. FLUVOXAMINE [Concomitant]
     Active Substance: FLUVOXAMINE
  5. FUROSEMIDE [Concomitant]
     Active Substance: FUROSEMIDE
  6. GABAPENTIN [Concomitant]
     Active Substance: GABAPENTIN
  7. OMEPRAZOLE [Concomitant]
     Active Substance: OMEPRAZOLE
  8. SPIRONOLACTONE [Concomitant]
     Active Substance: SPIRONOLACTONE
  9. URSODIOL [Concomitant]
     Active Substance: URSODIOL
  10. VITAMIN D2 [Concomitant]
     Active Substance: ERGOCALCIFEROL
     Dosage: 50,000IU (ERGO) CAP RX
  11. LEVOTHYROXINE [Concomitant]
     Active Substance: LEVOTHYROXINE
     Dosage: 0.05MG (50MCG) TAB

REACTIONS (1)
  - Vomiting [Recovering/Resolving]
